FAERS Safety Report 4314223-3 (Version None)
Quarter: 2004Q1

REPORT INFORMATION
  Report Type: 
  Country: None (occurrence: None)
  Receive Date: 20040302
  Receipt Date: 20031110
  Transmission Date: 20041129
  Serious: No
  Sender: FDA-Public Use
  Company Number: 2003-06306

PATIENT
  Sex: Male

DRUGS (3)
  1. VIREAD [Suspect]
     Indication: HIV INFECTION
     Dates: start: 20031105
  2. EMTRIVA [Suspect]
     Indication: HIV INFECTION
  3. SUSTIVA [Concomitant]

REACTIONS (4)
  - ABDOMINAL DISCOMFORT [None]
  - ABNORMAL DREAMS [None]
  - DIARRHOEA [None]
  - INSOMNIA [None]
